FAERS Safety Report 6264159-6 (Version None)
Quarter: 2009Q3

REPORT INFORMATION
  Report Type: 
  Country: None (occurrence: None)
  Receive Date: 20090710
  Receipt Date: 20090630
  Transmission Date: 20100115
  Serious: Yes (Other)
  Sender: FDA-Public Use
  Company Number: JP-PFIZER INC-2009235450

PATIENT
  Age: 71 Year

DRUGS (2)
  1. AZULFIDINE [Suspect]
     Dosage: 500 MG, 2X/DAY
     Route: 048
     Dates: start: 20090610
  2. RIDAURA [Concomitant]
     Route: 048
     Dates: end: 20090609

REACTIONS (1)
  - PANCYTOPENIA [None]
